FAERS Safety Report 15068008 (Version 1)
Quarter: 2018Q2

REPORT INFORMATION
  Report Type: Report from Study
  Country: US (occurrence: US)
  Receive Date: 20180626
  Receipt Date: 20180626
  Transmission Date: 20180711
  Serious: Yes (Other)
  Sender: FDA-Public Use
  Company Number: PHEH2018US024597

PATIENT
  Sex: Female

DRUGS (1)
  1. COSENTYX [Suspect]
     Active Substance: SECUKINUMAB
     Indication: ANKYLOSING SPONDYLITIS
     Dosage: 150 MG, QMO
     Route: 065

REACTIONS (5)
  - Subcutaneous abscess [Not Recovered/Not Resolved]
  - Therapeutic response decreased [Unknown]
  - Arthralgia [Unknown]
  - Folliculitis [Not Recovered/Not Resolved]
  - Acne [Unknown]
